FAERS Safety Report 10812351 (Version 1)
Quarter: 2015Q1

REPORT INFORMATION
  Report Type: Spontaneous
  Country: US (occurrence: None)
  Receive Date: 20150213
  Receipt Date: 20150213
  Transmission Date: 20150721
  Serious: Yes (Hospitalization)
  Sender: FDA-Public Use
  Company Number: None

PATIENT
  Age: 45 Year
  Sex: Female
  Weight: 66.68 kg

DRUGS (16)
  1. CLONIDINE. [Concomitant]
     Active Substance: CLONIDINE
  2. CYMBALTA [Concomitant]
     Active Substance: DULOXETINE HYDROCHLORIDE
  3. OXCARBAZEPINE. [Concomitant]
     Active Substance: OXCARBAZEPINE
  4. ACYCLOVIR. [Concomitant]
     Active Substance: ACYCLOVIR
  5. BACLOFEN. [Concomitant]
     Active Substance: BACLOFEN
  6. HYDROXYZINE HCL [Concomitant]
     Active Substance: HYDROXYZINE HYDROCHLORIDE
  7. TITANIDINE [Concomitant]
  8. LYRICA [Concomitant]
     Active Substance: PREGABALIN
  9. MORPHINE [Concomitant]
     Active Substance: MORPHINE
  10. ALEMTUZUMAB [Suspect]
     Active Substance: ALEMTUZUMAB
     Indication: MULTIPLE SCLEROSIS
     Dosage: 12MG/1.2ML X 3DAYS
     Dates: start: 20130513
  11. CLONAZEPAM. [Concomitant]
     Active Substance: CLONAZEPAM
  12. MELOZICAM [Concomitant]
  13. PROVIGIL [Concomitant]
     Active Substance: MODAFINIL
  14. BOTOX [Concomitant]
     Active Substance: ONABOTULINUMTOXINA
  15. LAMOTRIGINE. [Concomitant]
     Active Substance: LAMOTRIGINE
  16. VITAMIN D3 [Concomitant]
     Active Substance: CHOLECALCIFEROL

REACTIONS (4)
  - Torticollis [None]
  - Somnolence [None]
  - Headache [None]
  - Memory impairment [None]

NARRATIVE: CASE EVENT DATE: 201308
